FAERS Safety Report 4550660-X (Version None)
Quarter: 2004Q4

REPORT INFORMATION
  Report Type: 
  Country: None (occurrence: None)
  Receive Date: 20041227
  Receipt Date: 20040903
  Transmission Date: 20050328
  Serious: No
  Sender: FDA-Public Use
  Company Number: 04P-163-0272415-00

PATIENT
  Age: 72 Year
  Sex: Female
  Weight: 81.6475 kg

DRUGS (8)
  1. HUMIRA [Suspect]
     Indication: RHEUMATOID ARTHRITIS
     Dosage: 40 MG, 1 IN 2 WK, SUBCUTANEOUS
     Route: 058
     Dates: start: 20040901
  2. PANTOPRAZOLE [Concomitant]
  3. CENTRUM [Concomitant]
  4. NIFEDIPINE [Concomitant]
  5. QUINAPRIL HYDROCHLORIDE [Concomitant]
  6. LORAZEPAM [Concomitant]
  7. . [Concomitant]
  8. . [Concomitant]

REACTIONS (3)
  - CHILLS [None]
  - DYSPEPSIA [None]
  - INSOMNIA [None]
